FAERS Safety Report 19001534 (Version 2)
Quarter: 2021Q1

REPORT INFORMATION
  Report Type: Spontaneous
  Country: US (occurrence: US)
  Receive Date: 20210312
  Receipt Date: 20210315
  Transmission Date: 20210420
  Serious: No
  Sender: FDA-Public Use
  Company Number: US-FARMAPROD-202007-1034

PATIENT
  Age: 74 Year
  Sex: Female
  Weight: 53.57 kg

DRUGS (9)
  1. OXERVATE [Suspect]
     Active Substance: CENEGERMIN-BKBJ
     Indication: NEUROTROPHIC KERATOPATHY
     Route: 047
     Dates: start: 20200707, end: 20200929
  2. ASPIRINE [Concomitant]
     Active Substance: ASPIRIN
  3. VANCOMYCIN HCL/ NACL [Concomitant]
     Dosage: 0.9% NACL
  4. OXERVATE [Suspect]
     Active Substance: CENEGERMIN-BKBJ
     Indication: ULCERATIVE KERATITIS
     Route: 047
     Dates: start: 20201013, end: 20201222
  5. TOBRAMYCIN?DEXAMETHASONE [Concomitant]
     Active Substance: DEXAMETHASONE\TOBRAMYCIN
  6. VITAMINE C [Concomitant]
     Active Substance: ASCORBIC ACID
  7. ERYTHROMYCIN?BENZOYL PEROXIDE [Concomitant]
     Active Substance: BENZOYL PEROXIDE\ERYTHROMYCIN
  8. LISINOPRIL. [Concomitant]
     Active Substance: LISINOPRIL
  9. OINTMENT TUBE EACH [Concomitant]

REACTIONS (5)
  - Blood pressure increased [Unknown]
  - Off label use [Unknown]
  - Product administration error [Unknown]
  - Intraocular pressure increased [Unknown]
  - Product storage error [Unknown]

NARRATIVE: CASE EVENT DATE: 20201113
